FAERS Safety Report 10779108 (Version 5)
Quarter: 2024Q2

REPORT INFORMATION
  Report Type: Report from Study
  Country: US (occurrence: US)
  Receive Date: 20150210
  Receipt Date: 20240603
  Transmission Date: 20240716
  Serious: Yes (Death, Life-Threatening, Hospitalization, Disabling, Other)
  Sender: FDA-Public Use
  Company Number: US-AEGERION PHARMACEUTICAL INC.-AEGR000765

PATIENT
  Age: 70 Year
  Sex: Female
  Weight: 71.202 kg

DRUGS (15)
  1. JUXTAPID [Suspect]
     Active Substance: LOMITAPIDE MESYLATE
     Indication: Type IIa hyperlipidaemia
     Dosage: 5 MG, QD
     Route: 048
     Dates: start: 20131120, end: 201501
  2. COLCRYS [Concomitant]
     Active Substance: COLCHICINE
     Indication: Gout
     Dosage: UNK BID
     Route: 048
     Dates: start: 20130329
  3. FELODIPINE [Concomitant]
     Active Substance: FELODIPINE
     Indication: Hypertension
     Dosage: 5 MG, QD
     Route: 048
     Dates: start: 20080521
  4. ISOSORBIDE MONONITRATE [Concomitant]
     Active Substance: ISOSORBIDE MONONITRATE
     Indication: Angina pectoris
     Dosage: 60 MG, BID
     Route: 048
     Dates: start: 20020521
  5. LIPITOR [Concomitant]
     Active Substance: ATORVASTATIN CALCIUM
     Indication: Hypercholesterolaemia
     Dosage: 80 MG, QD
     Route: 048
  6. LOVAZA [Concomitant]
     Active Substance: OMEGA-3-ACID ETHYL ESTERS
     Indication: Hypercholesterolaemia
     Dosage: 4 G, QD
     Route: 048
     Dates: start: 20090629
  7. MAXZIDE [Concomitant]
     Active Substance: HYDROCHLOROTHIAZIDE\TRIAMTERENE
     Indication: Hypertension
     Dosage: 37.5/25 QD
     Route: 048
     Dates: start: 20071209
  8. METOPROLOL [Concomitant]
     Active Substance: METOPROLOL
     Indication: Coronary artery disease
     Dosage: 12.5 MG, QD
     Route: 048
     Dates: start: 20011003
  9. NAMENDA [Concomitant]
     Active Substance: MEMANTINE HYDROCHLORIDE
     Indication: Dementia Alzheimer^s type
     Dosage: 10 MG, QD
     Route: 048
     Dates: start: 20040723
  10. PLAVIX [Concomitant]
     Active Substance: CLOPIDOGREL BISULFATE
     Indication: Coronary artery disease
     Dosage: 75 MG, QD
     Route: 048
     Dates: start: 20030103
  11. PLETAL [Concomitant]
     Active Substance: CILOSTAZOL
     Indication: Peripheral arterial occlusive disease
     Dosage: 50 MG, QD
     Route: 048
     Dates: start: 20120611
  12. SYNTHROID [Concomitant]
     Active Substance: LEVOTHYROXINE SODIUM
     Indication: Hypothyroidism
     Dosage: 0.175 MG, BID
     Route: 058
     Dates: start: 20010330
  13. TRILIPIX [Concomitant]
     Active Substance: FENOFIBRIC ACID
     Indication: Hypercholesterolaemia
     Dosage: 135 MG, QD
     Route: 048
     Dates: start: 20100429
  14. VENTOLIN [Concomitant]
     Active Substance: ALBUTEROL SULFATE
     Indication: Asthma
     Dosage: 2 PUFF, PRN
     Dates: start: 20110817
  15. EXELON [Concomitant]
     Active Substance: RIVASTIGMINE TARTRATE
     Indication: Dementia Alzheimer^s type
     Dosage: 3 MG, QD
     Route: 048
     Dates: start: 20040929

REACTIONS (5)
  - Cardiogenic shock [Fatal]
  - Vascular stent thrombosis [Fatal]
  - Angina unstable [Recovered/Resolved]
  - Myocardial infarction [Recovering/Resolving]
  - Chest pain [Unknown]

NARRATIVE: CASE EVENT DATE: 20140901
